FAERS Safety Report 23103460 (Version 2)
Quarter: 2023Q4

REPORT INFORMATION
  Report Type: Spontaneous
  Country: US (occurrence: None)
  Receive Date: 20231025
  Receipt Date: 20231121
  Transmission Date: 20240110
  Serious: Yes (Hospitalization, Other)
  Sender: FDA-Public Use
  Company Number: 2023A236380

PATIENT
  Age: 72 Year
  Sex: Male

DRUGS (1)
  1. BYDUREON BCISE [Suspect]
     Active Substance: EXENATIDE
     Indication: Diabetes mellitus
     Dosage: 2 MG/0.85 ML
     Route: 058
     Dates: start: 20231011

REACTIONS (3)
  - Blood glucose increased [Recovered/Resolved]
  - Device defective [Unknown]
  - Visual impairment [Unknown]

NARRATIVE: CASE EVENT DATE: 20231011
